FAERS Safety Report 16155696 (Version 3)
Quarter: 2019Q2

REPORT INFORMATION
  Report Type: Report from Study
  Country: GB (occurrence: GB)
  Receive Date: 20190404
  Receipt Date: 20190509
  Transmission Date: 20190711
  Serious: Yes (Death, Life-Threatening, Hospitalization)
  Sender: FDA-Public Use
  Company Number: GB-CELLTRION INC.-2019GB019944

PATIENT

DRUGS (17)
  1. FIDAXOMICIN [Concomitant]
     Active Substance: FIDAXOMICIN
     Dosage: 200 MG, BID (10/7 COURSE FINISHING 04/02/2018)
     Route: 048
  2. TRUXIMA [Suspect]
     Active Substance: RITUXIMAB-ABBS
     Dosage: UNK
     Dates: start: 20171220
  3. TRUXIMA [Suspect]
     Active Substance: RITUXIMAB-ABBS
     Indication: DIFFUSE LARGE B-CELL LYMPHOMA
     Dosage: 900 MG AT 375 G PER M2, 3 WEEKLY
     Route: 042
     Dates: start: 20171018
  4. CHOP [Suspect]
     Active Substance: CYCLOPHOSPHAMIDE\DOXORUBICIN\PREDNISONE\VINCRISTINE
     Dosage: UNK
     Dates: start: 20171220
  5. MIRTAZAPINE. [Concomitant]
     Active Substance: MIRTAZAPINE
     Dosage: 45 MG, ON
     Route: 048
  6. TRUXIMA [Suspect]
     Active Substance: RITUXIMAB-ABBS
     Dosage: UNK
     Dates: start: 20171129
  7. TRUXIMA [Suspect]
     Active Substance: RITUXIMAB-ABBS
     Dosage: UNK
     Dates: end: 20190207
  8. CHOP [Suspect]
     Active Substance: CYCLOPHOSPHAMIDE\DOXORUBICIN\PREDNISONE\VINCRISTINE
     Indication: DIFFUSE LARGE B-CELL LYMPHOMA
     Dosage: 375 MG/M2
  9. TRUXIMA [Suspect]
     Active Substance: RITUXIMAB-ABBS
     Dosage: 800 MG; 3 WEEKLY
     Route: 042
  10. NYSTATIN. [Concomitant]
     Active Substance: NYSTATIN
     Dosage: 1 ML, QD (COMPLETE 7/7 ON 01/02/2018)
     Route: 048
  11. ADCAL D3 [Concomitant]
     Active Substance: CALCIUM CARBONATE\CHOLECALCIFEROL
     Dosage: T, BID
     Route: 048
  12. CHOP [Suspect]
     Active Substance: CYCLOPHOSPHAMIDE\DOXORUBICIN\PREDNISONE\VINCRISTINE
     Dosage: UNK
     Dates: end: 20190207
  13. AMILORIDE [Concomitant]
     Active Substance: AMILORIDE
     Dosage: 5 MG, OM
     Route: 048
  14. OXYCODONE MR [Concomitant]
     Dosage: 40 MG, BID
     Route: 048
  15. OXYCODONE IR [Concomitant]
     Active Substance: OXYCODONE
     Dosage: 10 MG PRN (2 HOURLY)
     Route: 048
  16. CHOP [Suspect]
     Active Substance: CYCLOPHOSPHAMIDE\DOXORUBICIN\PREDNISONE\VINCRISTINE
     Dosage: UNK
     Dates: start: 20171129
  17. OMEPRAZOLE. [Concomitant]
     Active Substance: OMEPRAZOLE
     Dosage: 20 MG, BID
     Route: 048

REACTIONS (4)
  - Clostridium difficile infection [Fatal]
  - Weight decreased [Unknown]
  - Acute kidney injury [Fatal]
  - Hypokalaemia [Recovering/Resolving]

NARRATIVE: CASE EVENT DATE: 20171218
